FAERS Safety Report 9378681 (Version 1)
Quarter: 2013Q2

REPORT INFORMATION
  Report Type: Spontaneous
  Country: None (occurrence: None)
  Receive Date: 20130626
  Receipt Date: 20130626
  Transmission Date: 20140414
  Serious: Yes (Hospitalization)
  Sender: FDA-Public Use
  Company Number: AG-2013-1597

PATIENT
  Age: 65 Year
  Sex: Male
  Weight: 60 kg

DRUGS (2)
  1. CHLORAMBUCIL (CHLORAMBUCIL) (UNKNOWN) [Suspect]
     Indication: CHRONIC LYMPHOCYTIC LEUKAEMIA
     Dosage: (112 MILLIGRAM,1 IN 1 MONTHS)
     Route: 048
     Dates: start: 20120821
  2. RITUXIMAB (RITUXIMAB) [Suspect]
     Indication: CHRONIC LYMPHOCYTIC LEUKAEMIA
     Dosage: (834 MILLIGRAM 1 IN 1 MONTHS)
     Route: 042
     Dates: start: 20120821

REACTIONS (4)
  - Lung infiltration [None]
  - Hypoxia [None]
  - Dyspnoea [None]
  - Pneumonia [None]
